FAERS Safety Report 8928412 (Version 1)
Quarter: 2012Q4

REPORT INFORMATION
  Report Type: Spontaneous
  Country: US (occurrence: None)
  Receive Date: 20121126
  Receipt Date: 20121126
  Transmission Date: 20130627
  Serious: Yes (Other)
  Sender: FDA-Public Use
  Company Number: None

PATIENT
  Age: 34 Year
  Sex: Male
  Weight: 86.64 kg

DRUGS (1)
  1. VENLAFAXINE HYDROCHLORIDE, XR 75 MG PFIZER [Suspect]
     Indication: DEPRESSION
     Route: 048
     Dates: start: 20121109, end: 20121111

REACTIONS (3)
  - Dystonia [None]
  - Tremor [None]
  - Extrapyramidal disorder [None]
